FAERS Safety Report 21996069 (Version 5)
Quarter: 2024Q1

REPORT INFORMATION
  Report Type: Report from Study
  Country: US (occurrence: US)
  Receive Date: 20230215
  Receipt Date: 20240121
  Transmission Date: 20240410
  Serious: Yes (Other)
  Sender: FDA-Public Use
  Company Number: US-002147023-NVSC2023US031574

PATIENT
  Sex: Male

DRUGS (2)
  1. COSENTYX [Suspect]
     Active Substance: SECUKINUMAB
     Indication: Psoriasis
     Dosage: 300 MG, QMO
     Route: 054
  2. COSENTYX [Suspect]
     Active Substance: SECUKINUMAB
     Indication: Psoriatic arthropathy
     Dosage: UNK
     Route: 058

REACTIONS (6)
  - Tuberculosis [Unknown]
  - Product use issue [Unknown]
  - Psoriasis [Unknown]
  - Therapeutic product effect incomplete [Unknown]
  - Cyst [Unknown]
  - Rebound effect [Unknown]
